FAERS Safety Report 10173373 (Version 2)
Quarter: 2014Q2

REPORT INFORMATION
  Report Type: Spontaneous
  Country: US (occurrence: US)
  Receive Date: 20140515
  Receipt Date: 20140613
  Transmission Date: 20141212
  Serious: Yes (Hospitalization, Other)
  Sender: FDA-Public Use
  Company Number: US-PFIZER INC-2014131773

PATIENT
  Age: 51 Year
  Sex: Male
  Weight: 117.9 kg

DRUGS (5)
  1. LIPITOR [Suspect]
     Indication: BLOOD CHOLESTEROL INCREASED
     Dosage: 40 MG, 1X/DAY
     Route: 048
  2. LIPITOR [Suspect]
     Indication: CEREBROVASCULAR ACCIDENT
  3. PLAVIX [Concomitant]
     Indication: CEREBROVASCULAR ACCIDENT
     Dosage: 75 MG, 1X/DAY
     Dates: start: 201303
  4. PLAVIX [Concomitant]
     Indication: ANTICOAGULANT THERAPY
  5. ASPIRIN [Concomitant]
     Indication: CEREBROVASCULAR ACCIDENT
     Dosage: 325 MG, 1X/DAY
     Dates: start: 201303

REACTIONS (1)
  - Myalgia [Recovering/Resolving]
